FAERS Safety Report 13290708 (Version 1)
Quarter: 2017Q1

REPORT INFORMATION
  Report Type: Spontaneous
  Country: JP (occurrence: JP)
  Receive Date: 20170302
  Receipt Date: 20170302
  Transmission Date: 20170428
  Serious: Yes (Death, Other)
  Sender: FDA-Public Use
  Company Number: JP-AMGEN-JPNSP2017032944

PATIENT
  Age: 83 Year
  Sex: Female

DRUGS (14)
  1. MIYA-BM [Concomitant]
     Active Substance: CLOSTRIDIUM BUTYRICUM SPORES STRAIN M-55
     Dosage: 1 G, TID
     Route: 048
  2. VECTIBIX [Suspect]
     Active Substance: PANITUMUMAB
     Indication: RECTOSIGMOID CANCER METASTATIC
     Dosage: 6 MG/KG, Q2WEEKS
     Route: 041
     Dates: start: 20110720, end: 20111207
  3. PYDOXAL [Concomitant]
     Active Substance: PYRIDOXAL
     Dosage: 20 MG, TID
     Route: 048
  4. TS-1 [Concomitant]
     Active Substance: GIMERACIL\OTERACIL\TEGAFUR
     Indication: RECTOSIGMOID CANCER METASTATIC
     Dosage: 80 MG, BID
     Route: 048
     Dates: start: 20110720
  5. ARTIST [Concomitant]
     Active Substance: CARVEDILOL
     Dosage: 20 MG, QD
     Route: 048
  6. BAYASPIRIN [Concomitant]
     Active Substance: ASPIRIN
     Dosage: 100 MG, QD
     Route: 048
  7. TRAMAL [Concomitant]
     Active Substance: TRAMADOL
     Dosage: 50 MG, QID
     Route: 048
  8. HYPEN                              /00613801/ [Concomitant]
     Active Substance: ETODOLAC
     Dosage: 200 MG, BID
     Route: 048
  9. EMEND [Concomitant]
     Active Substance: APREPITANT
     Dosage: UNK
     Route: 048
  10. TAKEPRON [Concomitant]
     Active Substance: LANSOPRAZOLE
     Dosage: 15 MG, QD
     Route: 048
  11. TRAVELMIN                          /00517301/ [Concomitant]
     Dosage: 1 DF, BID
     Route: 048
  12. IRINOTECAN HYDROCHLORIDE. [Concomitant]
     Active Substance: IRINOTECAN HYDROCHLORIDE
     Indication: RECTOSIGMOID CANCER METASTATIC
     Dosage: 100 MG/M2, Q2WEEKS
     Route: 041
     Dates: start: 20110720, end: 20111207
  13. CEPHARANTHINE [Concomitant]
     Active Substance: CEPHARANTHINE
     Dosage: 2 MG, TID
     Route: 048
  14. NU LOTAN [Concomitant]
     Active Substance: LOSARTAN
     Dosage: 50 MG, QD
     Route: 048

REACTIONS (3)
  - Rectosigmoid cancer metastatic [Fatal]
  - Subdural haematoma [Unknown]
  - Hypoalbuminaemia [Unknown]

NARRATIVE: CASE EVENT DATE: 20110728
